FAERS Safety Report 12340589 (Version 4)
Quarter: 2016Q2

REPORT INFORMATION
  Report Type: Spontaneous
  Country: US (occurrence: US)
  Receive Date: 20160506
  Receipt Date: 20160628
  Transmission Date: 20160815
  Serious: Yes (Hospitalization)
  Sender: FDA-Public Use
  Company Number: US-UNITED THERAPEUTICS-UNT-2016-007079

PATIENT
  Age: 71 Year
  Sex: Female
  Weight: 62.13 kg

DRUGS (1)
  1. REMODULIN [Suspect]
     Active Substance: TREPROSTINIL
     Indication: PULMONARY ARTERIAL HYPERTENSION
     Dosage: 0.081 ?G/KG, CONTINUING
     Route: 041
     Dates: start: 20070614, end: 20160612

REACTIONS (6)
  - Nervousness [Unknown]
  - Mental status changes [Unknown]
  - Anxiety [Unknown]
  - Malaise [Unknown]
  - Drug dose omission [Unknown]
  - Dementia [Unknown]

NARRATIVE: CASE EVENT DATE: 2016
